FAERS Safety Report 5367324-5 (Version None)
Quarter: 2007Q2

REPORT INFORMATION
  Report Type: 
  Country: None (occurrence: None)
  Receive Date: 20070622
  Receipt Date: 20060526
  Transmission Date: 20071010
  Serious: No
  Sender: FDA-Public Use
  Company Number: US-ASTRAZENECA-2006UW10327

PATIENT
  Age: 7 Year
  Sex: Male
  Weight: 27.3 kg

DRUGS (5)
  1. PULMICORT [Suspect]
     Indication: BRONCHIAL HYPERREACTIVITY
     Route: 055
     Dates: start: 20060524
  2. XOPENEX [Concomitant]
  3. NEXIUM [Concomitant]
     Route: 048
  4. SINGULAIR [Concomitant]
  5. ZYRTEC [Concomitant]

REACTIONS (2)
  - FEELING DRUNK [None]
  - MUSCULAR WEAKNESS [None]
